FAERS Safety Report 4347999-X (Version None)
Quarter: 2004Q1

REPORT INFORMATION
  Report Type: 
  Country: None (occurrence: None)
  Receive Date: 20040325
  Receipt Date: 20031203
  Transmission Date: 20041129
  Serious: No
  Sender: FDA-Public Use
  Company Number: USA030331285

PATIENT
  Age: 79 Year
  Sex: Female
  Weight: 53 kg

DRUGS (7)
  1. FORTEO [Suspect]
     Indication: OSTEOPOROSIS
     Dosage: 20 UG/DAY
     Dates: start: 20030207
  2. TAMOXIFEN CITRATE [Concomitant]
  3. ATENOLOL [Concomitant]
  4. LEVOXYL [Concomitant]
  5. HYDROCHLOROTHIAZIDE [Concomitant]
  6. QUINODERM CREAM WITH HYDROCORTISONE [Concomitant]
  7. METROGEL [Concomitant]

REACTIONS (5)
  - DIZZINESS [None]
  - FEELING ABNORMAL [None]
  - GAIT DISTURBANCE [None]
  - HEADACHE [None]
  - MUSCLE CRAMP [None]
